FAERS Safety Report 16419827 (Version 1)
Quarter: 2019Q3

REPORT INFORMATION
  Report Type: Spontaneous
  Country: US (occurrence: US)
  Receive Date: 20190611
  Receipt Date: 20190611
  Transmission Date: 20191004
  Serious: No
  Sender: FDA-Public Use
  Company Number: None

PATIENT
  Age: 27 Year
  Sex: Female
  Weight: 61.23 kg

DRUGS (9)
  1. OMEPRAZOLE. [Concomitant]
     Active Substance: OMEPRAZOLE
  2. ALBUTERNOL INHALER [Concomitant]
  3. LAMOTRIGINE. [Concomitant]
     Active Substance: LAMOTRIGINE
  4. GAS-X [Concomitant]
     Active Substance: DIMETHICONE
  5. OMEGA-3 ACIDS [Concomitant]
     Active Substance: OMEGA-3 FATTY ACIDS
  6. MIRENA [Suspect]
     Active Substance: LEVONORGESTREL
  7. ONDANSETRON [Concomitant]
     Active Substance: ONDANSETRON
  8. GUMMY VITAMINS [Concomitant]
  9. HYOSCYAMINE SULFATE. [Concomitant]
     Active Substance: HYOSCYAMINE SULFATE

REACTIONS (15)
  - Procedural pain [None]
  - Skin odour abnormal [None]
  - Adnexa uteri pain [None]
  - Impaired work ability [None]
  - Hyperhidrosis [None]
  - Depression [None]
  - Suicidal ideation [None]
  - Hypertrichosis [None]
  - Acne cystic [None]
  - Ovarian cyst [None]
  - Anxiety [None]
  - Weight fluctuation [None]
  - Subcutaneous abscess [None]
  - Vaginal odour [None]
  - Scar [None]
